FAERS Safety Report 5631827-6 (Version None)
Quarter: 2008Q1

REPORT INFORMATION
  Report Type: 
  Country: None (occurrence: None)
  Receive Date: 20080220
  Receipt Date: 20080208
  Transmission Date: 20080703
  Serious: Yes (Hospitalization)
  Sender: FDA-Public Use
  Company Number: PHBS2008NL02265

PATIENT
  Age: 76 Year
  Sex: Male

DRUGS (2)
  1. PREDNISOLONE [Concomitant]
     Indication: ALLERGIC GRANULOMATOUS ANGIITIS
  2. PAMIDRONATE DISODIUM [Suspect]
     Indication: OSTEOPOROSIS PROPHYLAXIS
     Route: 042

REACTIONS (7)
  - ATROPHY [None]
  - OEDEMA MOUTH [None]
  - OSTEONECROSIS [None]
  - PAIN IN JAW [None]
  - STREPTOCOCCAL INFECTION [None]
  - SWELLING [None]
  - THERAPEUTIC PROCEDURE [None]
